FAERS Safety Report 23466158 (Version 1)
Quarter: 2024Q1

REPORT INFORMATION
  Report Type: Spontaneous
  Country: US (occurrence: None)
  Receive Date: 20240131
  Receipt Date: 20240131
  Transmission Date: 20240410
  Serious: Yes (Death)
  Sender: FDA-Public Use
  Company Number: None

PATIENT
  Sex: Male

DRUGS (6)
  1. DEPAKOTE [Suspect]
     Active Substance: DIVALPROEX SODIUM
     Indication: Off label use
     Dosage: OTHER QUANTITY : 1 CAPSULE(S);?FREQUENCY : AT BEDTIME;?
     Route: 048
     Dates: start: 20240117, end: 20240122
  2. DEPAKOTE [Suspect]
     Active Substance: DIVALPROEX SODIUM
     Dosage: OTHER QUANTITY : 2 ML;?FREQUENCY : AT BEDTIME;?
     Route: 048
     Dates: start: 202401, end: 20240123
  3. MELATONIN [Concomitant]
     Active Substance: MELATONIN
  4. ELIQUIS [Concomitant]
     Active Substance: APIXABAN
  5. FERROUS SULFATE [Concomitant]
     Active Substance: FERROUS SULFATE
  6. ATORVASTATIN CALCIUM [Concomitant]
     Active Substance: ATORVASTATIN CALCIUM

REACTIONS (11)
  - Somnolence [None]
  - Decreased activity [None]
  - Hypophagia [None]
  - Abnormal behaviour [None]
  - Therapy change [None]
  - Decreased appetite [None]
  - Dehydration [None]
  - Product communication issue [None]
  - Blood pressure decreased [None]
  - Treatment delayed [None]
  - Product complaint [None]

NARRATIVE: CASE EVENT DATE: 20240117
